FAERS Safety Report 5078755-5 (Version None)
Quarter: 2006Q3

REPORT INFORMATION
  Report Type: 
  Country: None (occurrence: None)
  Receive Date: 20060814
  Receipt Date: 20060804
  Transmission Date: 20061208
  Serious: Yes (Life-Threatening, Hospitalization)
  Sender: FDA-Public Use
  Company Number: NL-JNJFOC-20060801259

PATIENT
  Age: 42 Year
  Sex: Male

DRUGS (1)
  1. REMICADE [Suspect]
     Indication: ANKYLOSING SPONDYLITIS
     Route: 042

REACTIONS (1)
  - PNEUMONIA LEGIONELLA [None]
